FAERS Safety Report 5511563-7 (Version None)
Quarter: 2007Q4

REPORT INFORMATION
  Report Type: 
  Country: None (occurrence: None)
  Receive Date: 20071109
  Receipt Date: 20071031
  Transmission Date: 20080405
  Serious: Yes (Other)
  Sender: FDA-Public Use
  Company Number: FR-ABBOTT-07P-056-0423036-00

PATIENT
  Age: 26 Year
  Sex: Male

DRUGS (5)
  1. VALPROATE DE SODIUM WINTHROP LP TABLET PR [Suspect]
     Indication: GRAND MAL CONVULSION
     Route: 048
     Dates: start: 20070101, end: 20070101
  2. VALPROATE DE SODIUM WINTHROP LP TABLET PR [Suspect]
  3. ESCITALOPRAM OXALATE [Concomitant]
     Indication: DEPRESSION
     Route: 048
  4. CLONAZEPAM [Concomitant]
     Indication: DEPRESSION
     Route: 048
     Dates: end: 20070101
  5. CLONAZEPAM [Concomitant]
     Route: 048
     Dates: start: 20070101

REACTIONS (3)
  - DRUG LEVEL DECREASED [None]
  - EPILEPSY [None]
  - THERAPEUTIC RESPONSE UNEXPECTED WITH DRUG SUBSTITUTION [None]
